FAERS Safety Report 12954990 (Version 1)
Quarter: 2016Q4

REPORT INFORMATION
  Report Type: Spontaneous
  Country: US (occurrence: US)
  Receive Date: 20161117
  Receipt Date: 20161117
  Transmission Date: 20170207
  Serious: No
  Sender: FDA-Public Use
  Company Number: None

PATIENT
  Age: 59 Year
  Sex: Male

DRUGS (1)
  1. CAPECITABINE 500MG TEVA PHARMACEUTICALS, USA [Suspect]
     Active Substance: CAPECITABINE
     Indication: PANCREATIC CARCINOMA
     Dosage: 4 TABLETS TWICE A DAY FOR 14 DAYS ON THEN BY MOUTH
     Route: 048
     Dates: start: 20160812, end: 20160814

REACTIONS (6)
  - Fatigue [None]
  - Therapy cessation [None]
  - Arthralgia [None]
  - Hypoaesthesia [None]
  - Myalgia [None]
  - Skin exfoliation [None]

NARRATIVE: CASE EVENT DATE: 20160814
